FAERS Safety Report 14545344 (Version 7)
Quarter: 2018Q2

REPORT INFORMATION
  Report Type: Spontaneous
  Country: US (occurrence: US)
  Receive Date: 20180218
  Receipt Date: 20180516
  Transmission Date: 20180711
  Serious: Yes (Hospitalization, Other)
  Sender: FDA-Public Use
  Company Number: PHEH2018US006403

PATIENT
  Sex: Male
  Weight: 84 kg

DRUGS (4)
  1. AFINITOR [Suspect]
     Active Substance: EVEROLIMUS
     Indication: RENAL CANCER
     Dosage: 5 MG, QD
     Route: 048
     Dates: start: 20180116
  2. LENVIMA [Suspect]
     Active Substance: LENVATINIB
     Indication: RENAL CANCER
     Dosage: 18 MG, QD
     Route: 048
     Dates: start: 20180116
  3. LENVIMA [Suspect]
     Active Substance: LENVATINIB
     Indication: RENAL CELL CARCINOMA STAGE IV
  4. AFINITOR [Suspect]
     Active Substance: EVEROLIMUS
     Indication: RENAL CELL CARCINOMA STAGE IV

REACTIONS (11)
  - Vomiting [Recovered/Resolved]
  - Renal impairment [Recovered/Resolved]
  - Dehydration [Unknown]
  - Pain [Recovered/Resolved]
  - Abdominal pain upper [Unknown]
  - Rash [Recovered/Resolved]
  - Cellulitis [Recovered/Resolved]
  - Skin infection [Recovered/Resolved]
  - Diarrhoea [Recovered/Resolved]
  - Back pain [Unknown]
  - Nausea [Unknown]
